FAERS Safety Report 13733979 (Version 1)
Quarter: 2017Q3

REPORT INFORMATION
  Report Type: Report from Study
  Country: US (occurrence: US)
  Receive Date: 20170708
  Receipt Date: 20170708
  Transmission Date: 20171127
  Serious: Yes (Other)
  Sender: FDA-Public Use
  Company Number: US-AMGEN-USASL2017062529

PATIENT
  Age: 47 Year
  Sex: Female

DRUGS (3)
  1. PRALUENT [Concomitant]
     Active Substance: ALIROCUMAB
     Dosage: UNK
  2. REPATHA [Suspect]
     Active Substance: EVOLOCUMAB
     Indication: BLOOD CHOLESTEROL INCREASED
     Dosage: 140 MG, Q2WK
     Route: 065
  3. REPATHA [Suspect]
     Active Substance: EVOLOCUMAB
     Indication: HYPERCHOLESTEROLAEMIA

REACTIONS (11)
  - Sluggishness [Recovered/Resolved]
  - Lung disorder [Unknown]
  - Hypersensitivity [Unknown]
  - Influenza [Unknown]
  - Vocal cord polyp [Not Recovered/Not Resolved]
  - Energy increased [Unknown]
  - Injection site pain [Unknown]
  - Impaired healing [Unknown]
  - Injection site bruising [Unknown]
  - Intentional product misuse [Unknown]
  - Influenza like illness [Unknown]
